FAERS Safety Report 24118832 (Version 1)
Quarter: 2024Q3

REPORT INFORMATION
  Report Type: Spontaneous
  Country: IN (occurrence: IN)
  Receive Date: 20240722
  Receipt Date: 20240722
  Transmission Date: 20241017
  Serious: Yes (Death, Other)
  Sender: CHEPLAPHARM
  Company Number: IN-CHEPLA-2024009070

PATIENT
  Age: 4 Decade
  Sex: Male

DRUGS (3)
  1. GANCICLOVIR [Suspect]
     Active Substance: GANCICLOVIR
     Indication: Cytomegalovirus colitis
     Route: 042
     Dates: start: 202306
  2. VALGANCICLOVIR [Suspect]
     Active Substance: VALGANCICLOVIR
     Indication: Antiviral prophylaxis
     Route: 048
     Dates: start: 2023
  3. ELRANATAMAB [Concomitant]
     Active Substance: ELRANATAMAB
     Indication: Plasma cell myeloma
     Dates: start: 202303

REACTIONS (8)
  - Immune effector cell-associated neurotoxicity syndrome [Fatal]
  - Toxic encephalopathy [Fatal]
  - Viral upper respiratory tract infection [Unknown]
  - Drug ineffective [Unknown]
  - Facial paralysis [Unknown]
  - Pyrexia [Unknown]
  - Partial seizures [Unknown]
  - Hemiplegia [Unknown]
